FAERS Safety Report 26048577 (Version 1)
Quarter: 2025Q4

REPORT INFORMATION
  Report Type: Spontaneous
  Country: US (occurrence: US)
  Receive Date: 20251114
  Receipt Date: 20251114
  Transmission Date: 20260118
  Serious: No
  Sender: LYNE LABORATORIES
  Company Number: US-Lyne Laboratories Inc.-2188586

PATIENT
  Age: 9 Year
  Sex: Female

DRUGS (1)
  1. CYPROHEPTADINE HYDROCHLORIDE [Suspect]
     Active Substance: CYPROHEPTADINE HYDROCHLORIDE
     Indication: Migraine

REACTIONS (3)
  - Irritability [Unknown]
  - Product use in unapproved indication [Unknown]
  - Somnolence [Unknown]
